FAERS Safety Report 9350266 (Version 2)
Quarter: 2013Q2

REPORT INFORMATION
  Report Type: Spontaneous
  Country: IL (occurrence: IL)
  Receive Date: 20130617
  Receipt Date: 20130620
  Transmission Date: 20140414
  Serious: Yes (Hospitalization)
  Sender: FDA-Public Use
  Company Number: IL-AMGEN-ISRSP2013042148

PATIENT
  Age: 65 Year
  Sex: Female

DRUGS (3)
  1. NEULASTIM [Suspect]
     Indication: PROPHYLAXIS
     Dosage: UNK
     Route: 065
     Dates: start: 20130530
  2. DOXORUBICIN /00330902/ [Suspect]
     Indication: BREAST CANCER
     Dosage: UNK, Q2WK
     Route: 065
  3. CYCLOPHOSPHAMIDE [Suspect]
     Indication: BREAST CANCER
     Dosage: UNK, Q2WK
     Route: 065

REACTIONS (1)
  - Febrile neutropenia [Recovered/Resolved]
